FAERS Safety Report 24421370 (Version 3)
Quarter: 2024Q4

REPORT INFORMATION
  Report Type: Report from Study
  Country: CA (occurrence: CA)
  Receive Date: 20241010
  Receipt Date: 20241225
  Transmission Date: 20250115
  Serious: Yes (Other)
  Sender: CSL BEHRING
  Company Number: CA-BEH-2024178253

PATIENT
  Age: 57 Year
  Sex: Male
  Weight: 52.154 kg

DRUGS (7)
  1. HIZENTRA [Suspect]
     Active Substance: HUMAN IMMUNOGLOBULIN G
     Indication: Chronic inflammatory demyelinating polyradiculoneuropathy
     Dosage: 14 G, QW
     Route: 065
     Dates: start: 20240831
  2. HIZENTRA [Suspect]
     Active Substance: HUMAN IMMUNOGLOBULIN G
     Dosage: UNK
     Route: 065
     Dates: start: 20240831
  3. HIZENTRA [Suspect]
     Active Substance: HUMAN IMMUNOGLOBULIN G
     Dosage: UNK UNK, QW
     Route: 065
     Dates: start: 20240901
  4. HIZENTRA [Suspect]
     Active Substance: HUMAN IMMUNOGLOBULIN G
     Dosage: UNK
     Route: 065
     Dates: start: 20240915
  5. HIZENTRA [Suspect]
     Active Substance: HUMAN IMMUNOGLOBULIN G
     Dosage: UNK
     Route: 065
     Dates: start: 20240915
  6. HIZENTRA [Suspect]
     Active Substance: HUMAN IMMUNOGLOBULIN G
     Dosage: UNK UNK, QW (PRODUCT STRENGTH: 14G)
     Route: 065
     Dates: start: 20240831
  7. QUETIAPINE [Concomitant]
     Active Substance: QUETIAPINE

REACTIONS (17)
  - Drug ineffective [Unknown]
  - Neuropathy peripheral [Unknown]
  - Condition aggravated [Unknown]
  - Injection site pain [Unknown]
  - Injection site pain [Unknown]
  - Weight decreased [Unknown]
  - Injection site pain [Unknown]
  - Injection site pain [Unknown]
  - Wrong technique in product usage process [Unknown]
  - Headache [Unknown]
  - Fatigue [Unknown]
  - Myalgia [Unknown]
  - Injection site pain [Unknown]
  - Infusion site swelling [Unknown]
  - Head discomfort [Unknown]
  - Nervousness [Unknown]
  - Therapy interrupted [Unknown]

NARRATIVE: CASE EVENT DATE: 20240831
